FAERS Safety Report 5650490-1 (Version None)
Quarter: 2008Q1

REPORT INFORMATION
  Report Type: 
  Country: None (occurrence: None)
  Receive Date: 20080304
  Receipt Date: 20080304
  Transmission Date: 20080703
  Serious: No
  Sender: FDA-Public Use
  Company Number: None

PATIENT
  Age: 27 Year
  Sex: Male
  Weight: 142.8831 kg

DRUGS (1)
  1. ZICAM [Suspect]
     Indication: NASOPHARYNGITIS
     Dosage: 1
     Dates: start: 20080303, end: 20080303

REACTIONS (3)
  - ACCIDENTAL EXPOSURE [None]
  - ANOSMIA [None]
  - NASAL DISCOMFORT [None]
